FAERS Safety Report 5994545-0 (Version None)
Quarter: 2008Q4

REPORT INFORMATION
  Report Type: 
  Country: None (occurrence: None)
  Receive Date: 20081212
  Receipt Date: 20081202
  Transmission Date: 20090506
  Serious: Yes (Congenital Anomaly)
  Sender: FDA-Public Use
  Company Number: NL-GILEAD-2008-0019311

PATIENT
  Sex: Male

DRUGS (6)
  1. VIREAD [Suspect]
     Route: 064
     Dates: start: 20070521
  2. TMC125 [Suspect]
     Route: 064
     Dates: start: 20080521
  3. PREZISTA [Suspect]
     Route: 064
  4. PREZISTA [Suspect]
     Dates: start: 20080919
  5. RITONAVIR [Suspect]
     Route: 064
     Dates: start: 20070521
  6. COMBIVIR [Suspect]
     Route: 064
     Dates: start: 20070521

REACTIONS (2)
  - ACCESSORY AURICLE [None]
  - MATERNAL DRUGS AFFECTING FOETUS [None]
